FAERS Safety Report 6079257-X (Version None)
Quarter: 2009Q1

REPORT INFORMATION
  Report Type: 
  Country: None (occurrence: None)
  Receive Date: 20090216
  Receipt Date: 20090205
  Transmission Date: 20090719
  Serious: Yes (Hospitalization)
  Sender: FDA-Public Use
  Company Number: PHEH2009US01454

PATIENT
  Sex: Male

DRUGS (2)
  1. TRILEPTAL [Suspect]
     Indication: MOOD SWINGS
     Dosage: 150 MG, TID
     Route: 048
     Dates: start: 20081201
  2. GEODON [Suspect]
     Indication: HALLUCINATION
     Dosage: UNK, UNK
     Route: 048
     Dates: start: 20090101

REACTIONS (3)
  - HALLUCINATION [None]
  - INSOMNIA [None]
  - RESTLESSNESS [None]
